FAERS Safety Report 9617969 (Version 2)
Quarter: 2013Q4

REPORT INFORMATION
  Report Type: Report from Study
  Country: US (occurrence: US)
  Receive Date: 20131011
  Receipt Date: 20131121
  Transmission Date: 20140711
  Serious: Yes (Other)
  Sender: FDA-Public Use
  Company Number: US-ABBVIE-13P-163-1154004-00

PATIENT
  Age: 42 Year
  Sex: Male

DRUGS (3)
  1. HUMIRA [Suspect]
     Indication: INTESTINAL FISTULA
     Route: 058
     Dates: start: 20130628
  2. HUMIRA [Suspect]
     Indication: CROHN^S DISEASE
     Route: 058
  3. 6-MP [Concomitant]
     Indication: PRODUCT USED FOR UNKNOWN INDICATION

REACTIONS (5)
  - Fistula [Unknown]
  - Arthralgia [Not Recovered/Not Resolved]
  - Rash macular [Unknown]
  - Myalgia [Not Recovered/Not Resolved]
  - Systemic lupus erythematosus rash [Not Recovered/Not Resolved]
